FAERS Safety Report 7045647-1 (Version None)
Quarter: 2010Q4

REPORT INFORMATION
  Report Type: 
  Country: None (occurrence: None)
  Receive Date: 20101014
  Receipt Date: 20101007
  Transmission Date: 20110411
  Serious: Yes (Other)
  Sender: FDA-Public Use
  Company Number: US-BAYER-201019740BCC

PATIENT
  Age: 94 Year
  Sex: Male
  Weight: 67 kg

DRUGS (3)
  1. ALEVE (CAPLET) [Suspect]
     Indication: ARTHRALGIA
     Dosage: HAS TAKEN ALEVE FOR QUITE A WHILE
     Route: 048
  2. UNKNOWN HERBAL MEDICINES [Concomitant]
  3. JUNIPER BERRY [Concomitant]

REACTIONS (2)
  - GASTROINTESTINAL PAIN [None]
  - HAEMATOCHEZIA [None]
